FAERS Safety Report 15170172 (Version 2)
Quarter: 2018Q3

REPORT INFORMATION
  Report Type: Spontaneous
  Country: US (occurrence: US)
  Receive Date: 20180720
  Receipt Date: 20180723
  Transmission Date: 20181010
  Serious: No
  Sender: FDA-Public Use
  Company Number: US-PFIZER INC-2018289701

PATIENT
  Age: 73 Year
  Sex: Male
  Weight: 79 kg

DRUGS (1)
  1. KETAMINE HCL [Suspect]
     Active Substance: KETAMINE HYDROCHLORIDE
     Indication: COMPLEX REGIONAL PAIN SYNDROME
     Dosage: UNK

REACTIONS (6)
  - Pre-existing condition improved [Unknown]
  - Prescription drug used without a prescription [Unknown]
  - Therapeutic response unexpected [Unknown]
  - Product use in unapproved indication [Unknown]
  - Euphoric mood [Unknown]
  - Intentional product misuse [Unknown]
